FAERS Safety Report 10913836 (Version 1)
Quarter: 2015Q1

REPORT INFORMATION
  Report Type: Spontaneous
  Country: FR (occurrence: FR)
  Receive Date: 20150313
  Receipt Date: 20150313
  Transmission Date: 20150721
  Serious: Yes (Other)
  Sender: FDA-Public Use
  Company Number: FR-JNJFOC-20150306611

PATIENT
  Age: 29 Year
  Sex: Male
  Weight: 87 kg

DRUGS (4)
  1. REMICADE [Suspect]
     Active Substance: INFLIXIMAB
     Indication: CROHN^S DISEASE
     Route: 042
     Dates: start: 20150223, end: 20150223
  2. REMICADE [Suspect]
     Active Substance: INFLIXIMAB
     Indication: CROHN^S DISEASE
     Route: 042
     Dates: start: 20140824
  3. REMICADE [Suspect]
     Active Substance: INFLIXIMAB
     Indication: CROHN^S DISEASE
     Route: 042
     Dates: start: 201412
  4. REMICADE [Suspect]
     Active Substance: INFLIXIMAB
     Indication: CROHN^S DISEASE
     Route: 042
     Dates: start: 201404

REACTIONS (7)
  - Intestinal obstruction [Unknown]
  - Infusion related reaction [Recovered/Resolved]
  - Latent tuberculosis [Unknown]
  - Rash papular [Recovered/Resolved]
  - Crohn^s disease [Unknown]
  - Blindness [Unknown]
  - Inflammation [Unknown]

NARRATIVE: CASE EVENT DATE: 2014
